FAERS Safety Report 19575425 (Version 1)
Quarter: 2021Q3

REPORT INFORMATION
  Report Type: Spontaneous
  Country: US (occurrence: US)
  Receive Date: 20210719
  Receipt Date: 20210719
  Transmission Date: 20211014
  Serious: Yes (Other)
  Sender: FDA-Public Use
  Company Number: ALC2021US004256

PATIENT
  Sex: Female

DRUGS (3)
  1. ALCAINE [PROXYMETACAINE HYDROCHLORIDE] [Suspect]
     Active Substance: PROPARACAINE HYDROCHLORIDE
     Indication: PRODUCT USED FOR UNKNOWN INDICATION
     Dosage: UNK USED 5 YEARS AGO
     Route: 065
  2. TIMOLOL MALEATE. [Concomitant]
     Active Substance: TIMOLOL MALEATE
     Indication: PRODUCT USED FOR UNKNOWN INDICATION
     Route: 065
  3. ALCAINE [PROXYMETACAINE HYDROCHLORIDE] [Suspect]
     Active Substance: PROPARACAINE HYDROCHLORIDE
     Dosage: UNK USED 3 YEARS AGO
     Route: 065

REACTIONS (4)
  - Eye inflammation [Unknown]
  - Blindness [Unknown]
  - Eye irritation [Unknown]
  - Hypersensitivity [Unknown]
